FAERS Safety Report 10017926 (Version 2)
Quarter: 2014Q1

REPORT INFORMATION
  Report Type: Spontaneous
  Country: US (occurrence: US)
  Receive Date: 20140318
  Receipt Date: 20140318
  Transmission Date: 20141002
  Serious: No
  Sender: FDA-Public Use
  Company Number: US-BRISTOL-MYERS SQUIBB COMPANY-18871418

PATIENT
  Age: 57 Year
  Sex: Male
  Weight: 149.66 kg

DRUGS (3)
  1. 5-FLUOROURACIL [Suspect]
     Indication: COLORECTAL CANCER
  2. ERBITUX [Suspect]
     Indication: COLORECTAL CANCER
     Dates: start: 201302
  3. IRINOTECAN [Suspect]
     Indication: COLORECTAL CANCER

REACTIONS (3)
  - Rash [Not Recovered/Not Resolved]
  - Pruritus [Unknown]
  - Diarrhoea [Unknown]
